FAERS Safety Report 9682574 (Version 1)
Quarter: 2013Q4

REPORT INFORMATION
  Report Type: Spontaneous
  Country: US (occurrence: US)
  Receive Date: 20131016
  Receipt Date: 20131016
  Transmission Date: 20140711
  Serious: Yes (Hospitalization, Other)
  Sender: FDA-Public Use
  Company Number: US-DRREDDYS-USA/USA/13/0034893

PATIENT
  Age: 35 Year
  Sex: Female

DRUGS (5)
  1. AUGMENTIN [Suspect]
     Indication: UPPER RESPIRATORY TRACT INFECTION
     Route: 065
  2. IPILIMUMAB [Suspect]
     Indication: MALIGNANT MELANOMA
     Route: 042
     Dates: start: 20120723
  3. IPILIMUMAB [Suspect]
     Route: 042
     Dates: start: 20120904
  4. IPILIMUMAB [Suspect]
     Route: 042
  5. LAMICTAL [Suspect]
     Indication: PRODUCT USED FOR UNKNOWN INDICATION
     Route: 065

REACTIONS (7)
  - Rash maculo-papular [Recovered/Resolved]
  - Pruritus [Unknown]
  - Decreased appetite [Unknown]
  - Dyspnoea [Unknown]
  - Activities of daily living impaired [Unknown]
  - Wheezing [Unknown]
  - Viral infection [Unknown]
